FAERS Safety Report 9285813 (Version 1)
Quarter: 2013Q2

REPORT INFORMATION
  Report Type: Spontaneous
  Country: US (occurrence: US)
  Receive Date: 20130513
  Receipt Date: 20130513
  Transmission Date: 20140414
  Serious: No
  Sender: FDA-Public Use
  Company Number: US-MYLANLABS-2012S1014196

PATIENT
  Sex: Female

DRUGS (1)
  1. FEXOFENADINE HYDROCHLORIDE [Suspect]
     Indication: SEASONAL ALLERGY

REACTIONS (3)
  - Urticaria [Not Recovered/Not Resolved]
  - Pruritus [Not Recovered/Not Resolved]
  - Paraesthesia oral [Not Recovered/Not Resolved]
